FAERS Safety Report 11489066 (Version 1)
Quarter: 2015Q3

REPORT INFORMATION
  Report Type: Spontaneous
  Country: IT (occurrence: IT)
  Receive Date: 20150910
  Receipt Date: 20150910
  Transmission Date: 20151125
  Serious: Yes (Other)
  Sender: FDA-Public Use
  Company Number: IT-CIPLA LTD.-2015IT07145

PATIENT

DRUGS (4)
  1. L-FOLINATE [Suspect]
     Active Substance: LEVOLEUCOVORIN
     Indication: COLORECTAL CANCER METASTATIC
     Dosage: 100 MG/M2, AS A 2-HOUR INFUSION ON DAYS 1 AND 2, EVERY SECOND WEEKS
  2. FLUOROURACIL. [Suspect]
     Active Substance: FLUOROURACIL
     Dosage: 600 MG/M2, AS 22-HOUR INFUSION ON DAYS 1 AND 2, IMMEDIATELY AFTER 5-FU BOLUS INJ, EVERY 2ND WEEKS
  3. FLUOROURACIL. [Suspect]
     Active Substance: FLUOROURACIL
     Indication: COLORECTAL CANCER METASTATIC
     Dosage: 400 MG/M2, AS AN INTRAVENOUS BOLUS INJECTION ON DAYS 1 AND 2, EVERY SECOND WEEKS
     Route: 040
  4. IRINOTECAN [Suspect]
     Active Substance: IRINOTECAN
     Indication: COLORECTAL CANCER METASTATIC
     Dosage: 180 MG/M2, AS A 1-HOUR INFUSION ON DAY 1, EVERY SECOND WEEKS

REACTIONS (1)
  - Cardiotoxicity [Unknown]
